FAERS Safety Report 23686348 (Version 1)
Quarter: 2024Q1

REPORT INFORMATION
  Report Type: Spontaneous
  Country: CZ (occurrence: CZ)
  Receive Date: 20240329
  Receipt Date: 20240329
  Transmission Date: 20240409
  Serious: Yes (Other)
  Sender: FDA-Public Use
  Company Number: None

PATIENT
  Age: 27 Year
  Sex: Female

DRUGS (2)
  1. ZALTRAP [Suspect]
     Active Substance: ZIV-AFLIBERCEPT
     Indication: Myopic chorioretinal degeneration
     Dosage: 1 UNK
     Route: 031
     Dates: start: 20240214, end: 20240214
  2. TOBRADEX [Concomitant]
     Active Substance: DEXAMETHASONE\TOBRAMYCIN
     Dosage: UNK;5 TIMES A DAY
     Route: 031
     Dates: start: 20240214

REACTIONS (6)
  - Endophthalmitis [Recovered/Resolved]
  - Vision blurred [Unknown]
  - Off label use [Unknown]
  - Contraindicated product administered [Unknown]
  - Inadequate aseptic technique in use of product [Unknown]
  - Product storage error [Unknown]

NARRATIVE: CASE EVENT DATE: 20240214
